FAERS Safety Report 20581174 (Version 2)
Quarter: 2022Q1

REPORT INFORMATION
  Report Type: Report from Study
  Country: EG (occurrence: EG)
  Receive Date: 20220311
  Receipt Date: 20220316
  Transmission Date: 20220423
  Serious: Yes (Hospitalization, Other)
  Sender: FDA-Public Use
  Company Number: EG-NOVARTISPH-NVSC2022EG056283

PATIENT
  Age: 31 Year
  Sex: Female

DRUGS (3)
  1. GILENYA [Suspect]
     Active Substance: FINGOLIMOD HYDROCHLORIDE
     Indication: Multiple sclerosis
     Dosage: 1 DOSAGE FORM, QD
     Route: 048
     Dates: start: 20191001
  2. ALFACALCIDOL [Concomitant]
     Active Substance: ALFACALCIDOL
     Indication: Nervous system disorder
     Dosage: 1 DOSAGE FORM, QD
     Route: 065
     Dates: start: 20210101
  3. GABTIN [Concomitant]
     Indication: Nervous system disorder
     Dosage: 1 DOSAGE FORM, QD
     Route: 065
     Dates: start: 202111

REACTIONS (11)
  - Thrombosis [Recovered/Resolved]
  - Oedema peripheral [Recovered/Resolved]
  - Immunodeficiency [Unknown]
  - Thrombosis [Unknown]
  - Pain in extremity [Recovering/Resolving]
  - Gait inability [Recovering/Resolving]
  - Oedema peripheral [Recovering/Resolving]
  - Alopecia [Recovering/Resolving]
  - Limb discomfort [Recovered/Resolved]
  - White blood cell count decreased [Unknown]
  - Cyst [Unknown]

NARRATIVE: CASE EVENT DATE: 20200101
